FAERS Safety Report 6262732-2 (Version None)
Quarter: 2009Q3

REPORT INFORMATION
  Report Type: 
  Country: None (occurrence: None)
  Receive Date: 20090709
  Receipt Date: 20090629
  Transmission Date: 20100115
  Serious: Yes (Death, Hospitalization)
  Sender: FDA-Public Use
  Company Number: GB-ABBOTT-08P-167-0494187-00

PATIENT
  Sex: Female

DRUGS (1)
  1. HUMIRA [Suspect]
     Indication: RHEUMATOID ARTHRITIS
     Route: 058
     Dates: start: 20081020, end: 20081103

REACTIONS (15)
  - ARTHRITIS BACTERIAL [None]
  - ATRIOVENTRICULAR BLOCK COMPLETE [None]
  - BRADYARRHYTHMIA [None]
  - CORONARY ARTERY DISEASE [None]
  - MALAISE [None]
  - MITRAL VALVE INCOMPETENCE [None]
  - MYOCARDIAL INFARCTION [None]
  - ORGAN FAILURE [None]
  - RENAL FAILURE [None]
  - RENAL FAILURE ACUTE [None]
  - SEPTIC SHOCK [None]
  - TRICUSPID VALVE INCOMPETENCE [None]
  - VENTRICULAR DYSFUNCTION [None]
  - VENTRICULAR HYPOKINESIA [None]
  - WOUND [None]
